FAERS Safety Report 21889271 (Version 1)
Quarter: 2023Q1

REPORT INFORMATION
  Report Type: Spontaneous
  Country: US (occurrence: US)
  Receive Date: 20230120
  Receipt Date: 20230120
  Transmission Date: 20230418
  Serious: Yes (Death, Hospitalization, Other)
  Sender: FDA-Public Use
  Company Number: US-APOTEX-2023AP002262

PATIENT
  Age: 8 Month
  Sex: Female

DRUGS (2)
  1. FENTANYL [Suspect]
     Active Substance: FENTANYL
     Indication: Product used for unknown indication
     Dosage: UNK
     Route: 048
  2. FENTANYL [Suspect]
     Active Substance: FENTANYL
     Dosage: UNK
     Route: 065

REACTIONS (7)
  - Cardio-respiratory arrest [Fatal]
  - Unresponsive to stimuli [Fatal]
  - Apnoea [Fatal]
  - Brain injury [Fatal]
  - Brain herniation [Fatal]
  - Brain death [Fatal]
  - Accidental exposure to product [Fatal]

NARRATIVE: CASE EVENT DATE: 20210101
